FAERS Safety Report 7119797-5 (Version None)
Quarter: 2010Q4

REPORT INFORMATION
  Report Type: 
  Country: None (occurrence: None)
  Receive Date: 20101123
  Receipt Date: 20100927
  Transmission Date: 20110411
  Serious: No
  Sender: FDA-Public Use
  Company Number: US-BRISTOL-MYERS SQUIBB COMPANY-15251465

PATIENT
  Age: 45 Year
  Sex: Female
  Weight: 1133 kg

DRUGS (7)
  1. ONGLYZA [Suspect]
     Indication: DIABETES MELLITUS
     Route: 048
     Dates: start: 20100617, end: 20100817
  2. PLAQUENIL [Suspect]
     Dates: start: 20100301
  3. PREDNISONE [Suspect]
     Dates: start: 20100301
  4. NOVOLOG [Suspect]
     Dates: start: 20100301
  5. IMURAN [Concomitant]
  6. BENICAR [Concomitant]
     Dosage: 1 DF= 20/12.5 MG
  7. PREDNISOLONE [Concomitant]
     Dates: start: 20100301

REACTIONS (1)
  - OEDEMA PERIPHERAL [None]
